FAERS Safety Report 9001506 (Version 1)
Quarter: 2013Q1

REPORT INFORMATION
  Report Type: Spontaneous
  Country: JP (occurrence: JP)
  Receive Date: 20130107
  Receipt Date: 20130107
  Transmission Date: 20140127
  Serious: Yes (Death)
  Sender: FDA-Public Use
  Company Number: JP-JHP PHARMACEUTICALS, LLC-JHP201200588

PATIENT
  Age: 23 Year
  Sex: Male

DRUGS (1)
  1. PITRESSIN [Suspect]
     Indication: DIABETES INSIPIDUS

REACTIONS (1)
  - Pulmonary thrombosis [Fatal]
